FAERS Safety Report 4936471-1 (Version None)
Quarter: 2006Q1

REPORT INFORMATION
  Report Type: 
  Country: None (occurrence: None)
  Receive Date: 20060127
  Receipt Date: 20051219
  Transmission Date: 20060701
  Serious: Yes (Disabling)
  Sender: FDA-Public Use
  Company Number: 2005151114

PATIENT
  Age: 56 Year
  Sex: Female

DRUGS (11)
  1. LYRICA [Suspect]
     Indication: DIABETIC NEUROPATHY
     Dosage: 150 MG (50 MG, 3 IN 1 D), ORAL
     Route: 048
     Dates: start: 20051018, end: 20051030
  2. NOVOLIN NPH (INSULIN HUMAN INJECTION, ISOPHANE) [Concomitant]
  3. GLUCOPHAGE [Concomitant]
  4. MONOPRIL [Concomitant]
  5. VYTORIN [Concomitant]
  6. PLAVIX [Concomitant]
  7. TOPAMAX [Concomitant]
  8. PROZAC [Concomitant]
  9. NEXIUM [Concomitant]
  10. MIACALCIN [Concomitant]
  11. NOVOLOG [Concomitant]

REACTIONS (1)
  - OEDEMA PERIPHERAL [None]
